FAERS Safety Report 8967025 (Version 2)
Quarter: 2013Q1

REPORT INFORMATION
  Report Type: Spontaneous
  Country: US (occurrence: US)
  Receive Date: 20121217
  Receipt Date: 20130122
  Transmission Date: 20140127
  Serious: Yes (Death)
  Sender: FDA-Public Use
  Company Number: PHEH2012US024607

PATIENT
  Age: 87 Year
  Sex: Male
  Weight: 62 kg

DRUGS (18)
  1. GLEEVEC [Suspect]
     Indication: CHRONIC MYELOID LEUKAEMIA
     Dosage: 400 MG, DAILY
     Route: 048
     Dates: start: 20100202, end: 20121015
  2. ISOSORBIDE DINITRATE [Concomitant]
  3. WARFARIN SODIUM [Concomitant]
  4. LOVASTATIN [Concomitant]
  5. LANOXICAPS [Concomitant]
  6. NITRO-DUR [Concomitant]
  7. ALPRAZOLAM [Concomitant]
  8. FUROSEMIDE [Concomitant]
  9. DIGOXIN [Concomitant]
  10. SYNTHROID [Concomitant]
  11. MEGESTROL [Concomitant]
  12. CAPTOPRIL [Concomitant]
  13. LEVOTHYROXINE [Concomitant]
     Dosage: UNK UKN, QD
     Route: 048
  14. PLAVIX [Concomitant]
     Dosage: UNK UKN, QD
     Route: 048
  15. LANOXIN [Concomitant]
     Dosage: UNK UKN, QD
     Route: 048
  16. LISINOPRIL [Concomitant]
     Dosage: UNK UKN, QD
     Route: 048
  17. METOPROLOL [Concomitant]
     Dosage: UNK UKN, QD
  18. LASIX [Concomitant]
     Dosage: UNK UKN, QD
     Route: 048

REACTIONS (2)
  - Death [Fatal]
  - General physical health deterioration [Unknown]
